FAERS Safety Report 9454543 (Version 4)
Quarter: 2014Q1

REPORT INFORMATION
  Report Type: Spontaneous
  Country: US (occurrence: US)
  Receive Date: 20130812
  Receipt Date: 20140220
  Transmission Date: 20141002
  Serious: Yes (Death, Hospitalization, Disabling, Other)
  Sender: FDA-Public Use
  Company Number: US-MERCK-1308USA005007

PATIENT
  Sex: Male
  Weight: 65.76 kg

DRUGS (2)
  1. JANUMET [Suspect]
     Indication: TYPE 2 DIABETES MELLITUS
     Dosage: 50/1000 MG, BID
     Route: 048
     Dates: start: 20081223, end: 201010
  2. BYETTA [Suspect]
     Indication: TYPE 2 DIABETES MELLITUS
     Dosage: 10 MICROGRAM, UNK
     Dates: start: 20070508, end: 201010

REACTIONS (52)
  - Pancreatic carcinoma [Unknown]
  - Bile duct cancer [Fatal]
  - Resection of rectum [Unknown]
  - Pancreaticoduodenectomy [Unknown]
  - Loss of consciousness [Unknown]
  - Pulmonary embolism [Unknown]
  - Rotator cuff repair [Unknown]
  - Spinal fusion surgery [Unknown]
  - Sepsis [Unknown]
  - Hepatic cancer metastatic [Unknown]
  - Infection [Recovered/Resolved]
  - Bacterial infection [Unknown]
  - Urinary tract infection [Unknown]
  - Failure to thrive [Unknown]
  - Jaundice [Unknown]
  - Renal colic [Unknown]
  - Urosepsis [Unknown]
  - Pyrexia [Unknown]
  - Hypokalaemia [Unknown]
  - Occult blood positive [Recovered/Resolved]
  - Blood alkaline phosphatase increased [Recovered/Resolved]
  - Diverticulum [Not Recovered/Not Resolved]
  - Vomiting [Recovered/Resolved]
  - Headache [Unknown]
  - Diarrhoea [Unknown]
  - Nausea [Recovered/Resolved]
  - Nephrolithiasis [Unknown]
  - Abnormal loss of weight [Unknown]
  - Gouty arthritis [Unknown]
  - Depression [Unknown]
  - Deep vein thrombosis [Unknown]
  - Type 2 diabetes mellitus [Unknown]
  - Haemorrhoid operation [Unknown]
  - Appendicectomy [Unknown]
  - Pulmonary fibrosis [Not Recovered/Not Resolved]
  - Benign prostatic hyperplasia [Unknown]
  - Shoulder operation [Unknown]
  - Hyperlipidaemia [Unknown]
  - Vertigo [Unknown]
  - Weight decreased [Unknown]
  - Oral candidiasis [Unknown]
  - Syncope [Unknown]
  - Dehydration [Unknown]
  - Orthostatic hypotension [Unknown]
  - Paracentesis [Unknown]
  - Aspiration pleural cavity [Unknown]
  - Chills [Unknown]
  - Nausea [Unknown]
  - Abdominal pain [Unknown]
  - Vomiting [Unknown]
  - Arthralgia [Unknown]
  - Musculoskeletal chest pain [Unknown]
